FAERS Safety Report 6290575-2 (Version None)
Quarter: 2009Q3

REPORT INFORMATION
  Report Type: 
  Country: None (occurrence: None)
  Receive Date: 20090728
  Receipt Date: 20090728
  Transmission Date: 20100115
  Serious: Yes (Other)
  Sender: FDA-Public Use
  Company Number: None

PATIENT
  Age: 36 Year
  Sex: Female
  Weight: 95 kg

DRUGS (3)
  1. ROCURONIUM BROMIDE [Suspect]
     Indication: SURGERY
     Dosage: 250 MG OVER 12 HRS IV DRIP
     Route: 041
     Dates: start: 20090723, end: 20090723
  2. ATRACURIUM [Concomitant]
  3. PANCURONIUM [Concomitant]

REACTIONS (1)
  - MUSCLE TWITCHING [None]
